FAERS Safety Report 7917195-5 (Version None)
Quarter: 2011Q4

REPORT INFORMATION
  Report Type: 
  Country: None (occurrence: None)
  Receive Date: 20111116
  Receipt Date: 20111109
  Transmission Date: 20120403
  Serious: Yes (Other)
  Sender: FDA-Public Use
  Company Number: US-AMGEN-USASP2011058802

PATIENT
  Age: 46 Year
  Sex: Female

DRUGS (1)
  1. ENBREL [Suspect]
     Indication: RHEUMATOID ARTHRITIS
     Dosage: 50 MG, QWK
     Dates: start: 20111017

REACTIONS (6)
  - THROAT TIGHTNESS [None]
  - DRY THROAT [None]
  - THROAT IRRITATION [None]
  - DYSPNOEA [None]
  - NASAL CONGESTION [None]
  - CHEST DISCOMFORT [None]
